FAERS Safety Report 6175276-3 (Version None)
Quarter: 2009Q2

REPORT INFORMATION
  Report Type: 
  Country: None (occurrence: None)
  Receive Date: 20090430
  Receipt Date: 20090205
  Transmission Date: 20091009
  Serious: No
  Sender: FDA-Public Use
  Company Number: US-ASTRAZENECA-2009UW03416

PATIENT
  Sex: Female
  Weight: 68 kg

DRUGS (4)
  1. NEXIUM [Suspect]
     Indication: GASTROOESOPHAGEAL REFLUX DISEASE
     Route: 048
  2. ATACAND [Concomitant]
  3. TOPROL-XL [Concomitant]
  4. SYNTHROID [Concomitant]

REACTIONS (3)
  - CHEST PAIN [None]
  - NECK PAIN [None]
  - PRODUCT QUALITY ISSUE [None]
